FAERS Safety Report 7393097-0 (Version None)
Quarter: 2011Q2

REPORT INFORMATION
  Report Type: 
  Country: None (occurrence: None)
  Receive Date: 20110404
  Receipt Date: 20110323
  Transmission Date: 20111010
  Serious: Yes (Hospitalization)
  Sender: FDA-Public Use
  Company Number: CA-WATSON-2011-03870

PATIENT
  Sex: Female

DRUGS (3)
  1. TRELSTAR DEPOT [Suspect]
     Indication: BREAST CANCER
     Dosage: 3.75 MG (3.75 M- 2)
     Route: 030
     Dates: start: 20110218
  2. DOCETAXEL [Suspect]
     Indication: BREAST CANCER
     Dosage: UNK
     Route: 065
     Dates: start: 20110218
  3. CYCLOPHOSPHAMIDE [Suspect]
     Indication: BREAST CANCER
     Dosage: UNK
     Dates: start: 20110218

REACTIONS (7)
  - RASH ERYTHEMATOUS [None]
  - OROPHARYNGEAL PAIN [None]
  - RASH PRURITIC [None]
  - RASH [None]
  - ORAL PAIN [None]
  - LIP SWELLING [None]
  - NEUTROPENIA [None]
